FAERS Safety Report 9851981 (Version 2)
Quarter: 2014Q1

REPORT INFORMATION
  Report Type: Spontaneous
  Country: US (occurrence: None)
  Receive Date: 20131127
  Receipt Date: 20140228
  Transmission Date: 20141002
  Serious: Yes (Other)
  Sender: FDA-Public Use
  Company Number: 224437LEO

PATIENT
  Age: 69 Year
  Sex: Female

DRUGS (1)
  1. PICATO [Suspect]
     Indication: ACTINIC KERATOSIS
     Route: 061
     Dates: start: 20131024, end: 20131026

REACTIONS (6)
  - Application site erythema [None]
  - Application site swelling [None]
  - Application site ulcer [None]
  - Eye swelling [None]
  - Drug administered at inappropriate site [None]
  - Wrong technique in drug usage process [None]
